FAERS Safety Report 15206670 (Version 3)
Quarter: 2018Q3

REPORT INFORMATION
  Report Type: Spontaneous
  Country: US (occurrence: US)
  Receive Date: 20180727
  Receipt Date: 20180827
  Transmission Date: 20181010
  Serious: No
  Sender: FDA-Public Use
  Company Number: US-PFIZER INC-2018301547

PATIENT
  Age: 33 Year
  Sex: Female

DRUGS (2)
  1. TRETINOIN. [Concomitant]
     Active Substance: TRETINOIN
     Indication: ACNE
     Dosage: 0.1 %, UNK
  2. CLINDAMYCIN PHOSPHATE. [Suspect]
     Active Substance: CLINDAMYCIN PHOSPHATE
     Indication: ACNE
     Dosage: 1 %, DAILY (1 %, APPLY AFTER WASHING FACE WITH BENZOYL PEROXIDE)
     Route: 061
     Dates: start: 20180203

REACTIONS (4)
  - Product quality issue [Unknown]
  - Skin burning sensation [Recovered/Resolved]
  - Lacrimation increased [Unknown]
  - Eye irritation [Recovered/Resolved]

NARRATIVE: CASE EVENT DATE: 201807
